FAERS Safety Report 4397406-6 (Version None)
Quarter: 2004Q2

REPORT INFORMATION
  Report Type: 
  Country: None (occurrence: None)
  Receive Date: 20040621
  Receipt Date: 20040211
  Transmission Date: 20050107
  Serious: Yes (Other)
  Sender: FDA-Public Use
  Company Number: USA-2004-0013059

PATIENT
  Age: 61 Year
  Sex: Female
  Weight: 136.1 kg

DRUGS (11)
  1. OXYCONTIN [Suspect]
     Indication: PAIN
     Dosage: 40 MG, Q12H
  2. OXYIR (OXYCODONE HYDROCHLORIDE) [Suspect]
     Indication: PAIN
  3. COUMADIN [Concomitant]
  4. DILTIAZEM [Concomitant]
  5. ALTACE [Concomitant]
  6. LESCOL [Concomitant]
  7. DIGITALIS [Concomitant]
  8. LASIX [Concomitant]
  9. GLUCOTROL [Concomitant]
  10. SINGULAIR [Concomitant]
  11. INSULIN [Concomitant]

REACTIONS (4)
  - ARTHRITIS [None]
  - CONDITION AGGRAVATED [None]
  - CONVULSION [None]
  - WEIGHT INCREASED [None]
